FAERS Safety Report 22033782 (Version 1)
Quarter: 2023Q1

REPORT INFORMATION
  Report Type: Spontaneous
  Country: US (occurrence: US)
  Receive Date: 20230224
  Receipt Date: 20230224
  Transmission Date: 20230418
  Serious: Yes (Hospitalization)
  Sender: FDA-Public Use
  Company Number: US-TEVA-2023-US-2858418

PATIENT
  Age: 72 Year
  Sex: Female

DRUGS (1)
  1. METOPROLOL [Suspect]
     Active Substance: METOPROLOL
     Indication: Product used for unknown indication
     Dosage: 50 MG
     Route: 065

REACTIONS (5)
  - Dyspnoea [Unknown]
  - Myocardial infarction [Unknown]
  - Fatigue [Unknown]
  - Palpitations [Recovered/Resolved]
  - Heart rate increased [Recovered/Resolved]
